FAERS Safety Report 16182494 (Version 1)
Quarter: 2019Q2

REPORT INFORMATION
  Report Type: Spontaneous
  Country: US (occurrence: US)
  Receive Date: 20190411
  Receipt Date: 20190411
  Transmission Date: 20190711
  Serious: Yes (Hospitalization, Other)
  Sender: FDA-Public Use
  Company Number: US-AMGEN-USASP2019054796

PATIENT
  Age: 83 Year
  Sex: Female

DRUGS (4)
  1. PROLIA [Suspect]
     Active Substance: DENOSUMAB
     Indication: OSTEOPOROSIS POSTMENOPAUSAL
     Dosage: 60 MILLIGRAM, Q6MO
     Route: 065
  2. VIT D [Concomitant]
     Active Substance: VITAMIN D NOS
     Dosage: 400 IU INTERNATIONAL UNIT(S)
  3. PRALUENT [Suspect]
     Active Substance: ALIROCUMAB
     Indication: BLOOD CHOLESTEROL INCREASED
     Dosage: UNK
     Route: 065
  4. CALCIUM [Concomitant]
     Active Substance: CALCIUM
     Dosage: 1000 MILLIGRAM

REACTIONS (12)
  - Myalgia [Not Recovered/Not Resolved]
  - Blood cholesterol increased [Unknown]
  - Upper limb fracture [Unknown]
  - Angioplasty [Unknown]
  - Gait disturbance [Unknown]
  - Intervertebral disc operation [Unknown]
  - Arthralgia [Unknown]
  - Hip arthroplasty [Unknown]
  - Knee arthroplasty [Unknown]
  - Fall [Unknown]
  - Peripheral swelling [Recovered/Resolved]
  - Bone pain [Not Recovered/Not Resolved]
